FAERS Safety Report 5306081-5 (Version None)
Quarter: 2007Q2

REPORT INFORMATION
  Report Type: 
  Country: None (occurrence: None)
  Receive Date: 20070424
  Receipt Date: 20060322
  Transmission Date: 20071010
  Serious: Yes (Life-Threatening, Hospitalization)
  Sender: FDA-Public Use
  Company Number: US-BRISTOL-MYERS SQUIBB COMPANY-13250485

PATIENT
  Age: 59 Year
  Sex: Female
  Weight: 54 kg

DRUGS (6)
  1. PARAPLATIN [Suspect]
     Indication: OVARIAN CANCER
     Route: 042
     Dates: start: 20051213, end: 20051213
  2. PACLITAXEL [Concomitant]
     Route: 042
  3. ALOXI [Concomitant]
     Route: 042
  4. DECADRON [Concomitant]
     Route: 042
  5. BENADRYL [Concomitant]
     Route: 042
  6. TAGAMET [Concomitant]
     Route: 042

REACTIONS (5)
  - COLD SWEAT [None]
  - DYSPNOEA [None]
  - ERYTHEMA [None]
  - PRURITUS [None]
  - THROAT TIGHTNESS [None]
